FAERS Safety Report 5217537-8 (Version None)
Quarter: 2007Q1

REPORT INFORMATION
  Report Type: 
  Country: None (occurrence: None)
  Receive Date: 20070119
  Receipt Date: 20070109
  Transmission Date: 20070707
  Serious: No
  Sender: FDA-Public Use
  Company Number: 2007-152770-NL

PATIENT
  Age: 57 Year
  Sex: Female

DRUGS (8)
  1. MIRTAZAPINE [Suspect]
     Indication: DEPRESSION
     Dosage: 15 MG ORAL
     Route: 048
     Dates: start: 20061116, end: 20061128
  2. ACETYLSALICYLIC ACID [Concomitant]
  3. ATORVASTATIN CALCIUM [Concomitant]
  4. BISOPROLOL FUMARATE [Concomitant]
  5. DULOXETINE [Concomitant]
  6. FRUSEMIDE [Concomitant]
  7. RAMIPRIL [Concomitant]
  8. KLIOFEM [Concomitant]

REACTIONS (6)
  - FLUID RETENTION [None]
  - HEADACHE [None]
  - HYPOMANIA [None]
  - OEDEMA PERIPHERAL [None]
  - ORTHOSTATIC HYPOTENSION [None]
  - PULMONARY OEDEMA [None]
